FAERS Safety Report 18206057 (Version 2)
Quarter: 2020Q3

REPORT INFORMATION
  Report Type: Report from Study
  Country: SA (occurrence: SA)
  Receive Date: 20200828
  Receipt Date: 20200903
  Transmission Date: 20201103
  Serious: Yes (Hospitalization, Other)
  Sender: FDA-Public Use
  Company Number: SA-AXELLIA-003311

PATIENT
  Age: 79 Year
  Sex: Male
  Weight: 76 kg

DRUGS (4)
  1. CEFTOBIPROL/CEFTOBIPROLBEDOCARIL/CEFTOBIPROLBEDOCARIL?NARTIUM [Concomitant]
     Active Substance: CEFTOBIPROLE
     Indication: STAPHYLOCOCCAL INFECTION
  2. VANCOMYCIN [Suspect]
     Active Substance: VANCOMYCIN
     Indication: STAPHYLOCOCCAL INFECTION
     Dosage: LOADING DOSE WAS 2 GM INTRAVENOUSLY, FOLLOWED BY 1 GM ONCE DAILY
     Route: 042
  3. VANCOMYCIN [Suspect]
     Active Substance: VANCOMYCIN
     Indication: STAPHYLOCOCCAL INFECTION
     Dosage: THE DOSE LATER WAS ADJUSTED BASED ON THE LEVEL RANGING BETWEEN HOLDING AND 250?750 MG
     Route: 042
  4. VANCOMYCIN [Suspect]
     Active Substance: VANCOMYCIN
     Indication: STAPHYLOCOCCAL INFECTION
     Route: 042

REACTIONS (2)
  - Condition aggravated [Recovered/Resolved]
  - Renal impairment [Recovered/Resolved]
